FAERS Safety Report 8282141-4 (Version None)
Quarter: 2012Q2

REPORT INFORMATION
  Report Type: 
  Country: None (occurrence: None)
  Receive Date: 20120413
  Receipt Date: 20120403
  Transmission Date: 20120825
  Serious: Yes (Life-Threatening, Hospitalization, Other)
  Sender: FDA-Public Use
  Company Number: DE-BRISTOL-MYERS SQUIBB COMPANY-16506974

PATIENT
  Age: 59 Year

DRUGS (3)
  1. MITOMYCIN [Suspect]
     Indication: BREAST CANCER RECURRENT
     Route: 042
     Dates: start: 20100901, end: 20110101
  2. FLUOROURACIL [Concomitant]
     Indication: BREAST CANCER RECURRENT
     Route: 042
     Dates: start: 20100901, end: 20110101
  3. FOLIC ACID [Concomitant]
     Indication: BREAST CANCER RECURRENT
     Route: 042
     Dates: start: 20100901, end: 20110101

REACTIONS (2)
  - HYPOXIA [None]
  - PULMONARY ARTERIAL HYPERTENSION [None]
